FAERS Safety Report 16626277 (Version 1)
Quarter: 2019Q3

REPORT INFORMATION
  Report Type: Spontaneous
  Country: ID (occurrence: ID)
  Receive Date: 20190724
  Receipt Date: 20190724
  Transmission Date: 20191004
  Serious: Yes (Other)
  Sender: FDA-Public Use
  Company Number: ID-BAYER-2019-133424

PATIENT
  Age: 15 Year
  Sex: Female

DRUGS (13)
  1. OMEPRAZOLE. [Concomitant]
     Active Substance: OMEPRAZOLE
  2. GADOVIST [Suspect]
     Active Substance: GADOBUTROL
     Indication: NUCLEAR MAGNETIC RESONANCE IMAGING BRAIN
     Dosage: 5 ML, ONCE
     Dates: start: 20190705
  3. SUCRALFATE. [Concomitant]
     Active Substance: SUCRALFATE
  4. TRAMADOL. [Concomitant]
     Active Substance: TRAMADOL
  5. ONDANSETRON [Concomitant]
     Active Substance: ONDANSETRON
     Route: 042
  6. MANNITOL. [Concomitant]
     Active Substance: MANNITOL
  7. PIRACETAM [Concomitant]
     Active Substance: PIRACETAM
     Dosage: 600 MG
     Route: 048
  8. KETOROLAC [Concomitant]
     Active Substance: KETOROLAC TROMETHAMINE
     Route: 042
  9. RANITIDINE. [Concomitant]
     Active Substance: RANITIDINE
     Route: 042
  10. RISPERIDONE. [Concomitant]
     Active Substance: RISPERIDONE
  11. LACTULAC [Concomitant]
  12. DEXAMETHASONE. [Concomitant]
     Active Substance: DEXAMETHASONE
     Route: 042
  13. PHENYTOIN. [Suspect]
     Active Substance: PHENYTOIN
     Route: 048

REACTIONS (1)
  - Stevens-Johnson syndrome [None]

NARRATIVE: CASE EVENT DATE: 20190706
